FAERS Safety Report 23786166 (Version 1)
Quarter: 2024Q2

REPORT INFORMATION
  Report Type: Spontaneous
  Country: DE (occurrence: None)
  Receive Date: 20240426
  Receipt Date: 20240426
  Transmission Date: 20240715
  Serious: Yes (Death)
  Sender: FDA-Public Use
  Company Number: 2024A095926

PATIENT
  Sex: Female

DRUGS (1)
  1. SAPHNELO [Suspect]
     Active Substance: ANIFROLUMAB\ANIFROLUMAB-FNIA
     Indication: Systemic lupus erythematosus
     Route: 042
     Dates: start: 202301, end: 202403

REACTIONS (1)
  - Sepsis [Fatal]
